FAERS Safety Report 10564326 (Version 1)
Quarter: 2014Q4

REPORT INFORMATION
  Report Type: Spontaneous
  Country: IT (occurrence: IT)
  Receive Date: 20141104
  Receipt Date: 20141104
  Transmission Date: 20150529
  Serious: Yes (Other)
  Sender: FDA-Public Use
  Company Number: IT-ELI_LILLY_AND_COMPANY-IT201410010596

PATIENT
  Age: 65 Year
  Sex: Male

DRUGS (1)
  1. ZYPADHERA [Suspect]
     Active Substance: OLANZAPINE PAMOATE
     Indication: SCHIZOAFFECTIVE DISORDER
     Dosage: UNK UNK, UNKNOWN
     Route: 030
     Dates: start: 2013

REACTIONS (3)
  - Hypertension [Unknown]
  - Sedation [Unknown]
  - Confusional state [Unknown]

NARRATIVE: CASE EVENT DATE: 20141020
